FAERS Safety Report 6657585-4 (Version None)
Quarter: 2010Q1

REPORT INFORMATION
  Report Type: 
  Country: None (occurrence: None)
  Receive Date: 20100319
  Receipt Date: 20090423
  Transmission Date: 20100710
  Serious: Yes (Other)
  Sender: FDA-Public Use
  Company Number: 2009SP008972

PATIENT
  Age: 57 Year
  Sex: Male

DRUGS (7)
  1. PEG-INTRON [Suspect]
     Indication: DRUG USE FOR UNKNOWN INDICATION
     Dosage: 0.5 MG;QW; 0.4 MGLQW;
     Dates: start: 20071201, end: 20081201
  2. PEG-INTRON [Suspect]
     Indication: DRUG USE FOR UNKNOWN INDICATION
     Dosage: 0.5 MG;QW; 0.4 MGLQW;
     Dates: start: 20081201, end: 20090101
  3. REBETOL [Suspect]
     Indication: DRUG USE FOR UNKNOWN INDICATION
     Dosage: PO
     Route: 048
     Dates: end: 20081201
  4. LEXAPRO (CON.0 [Concomitant]
  5. VALTREX (CON.) [Concomitant]
  6. AMBIEN (CON.) [Concomitant]
  7. NASACORT (CON.) [Concomitant]

REACTIONS (3)
  - DEAFNESS [None]
  - NEUROPATHY PERIPHERAL [None]
  - SARCOIDOSIS [None]
